FAERS Safety Report 25526439 (Version 1)
Quarter: 2025Q3

REPORT INFORMATION
  Report Type: Spontaneous
  Country: US (occurrence: US)
  Receive Date: 20250707
  Receipt Date: 20250707
  Transmission Date: 20251020
  Serious: No
  Sender: MALLINCKRODT
  Company Number: US-MALLINCKRODT-MNK202503789

PATIENT
  Age: 99 Year
  Sex: Female

DRUGS (7)
  1. CORTICOTROPIN [Suspect]
     Active Substance: CORTICOTROPIN
     Indication: Dry eye
     Route: 058
     Dates: start: 20250527
  2. GABAPENTIN [Concomitant]
     Active Substance: GABAPENTIN
  3. GEMTESA [Concomitant]
     Active Substance: VIBEGRON
  4. RESTASIS [Concomitant]
     Active Substance: CYCLOSPORINE
  5. LATANOPROST [Concomitant]
     Active Substance: LATANOPROST
  6. TIMOLOL [Concomitant]
     Active Substance: TIMOLOL
  7. TYLENOL [Concomitant]
     Active Substance: ACETAMINOPHEN

REACTIONS (4)
  - Fall [Unknown]
  - Balance disorder [Unknown]
  - Dizziness [Unknown]
  - Headache [Unknown]

NARRATIVE: CASE EVENT DATE: 20250101
